FAERS Safety Report 9246409 (Version 2)
Quarter: 2013Q2

REPORT INFORMATION
  Report Type: Other
  Country: NL (occurrence: NL)
  Receive Date: 20130422
  Receipt Date: 20130430
  Transmission Date: 20140414
  Serious: Yes (Death)
  Sender: FDA-Public Use
  Company Number: NL-WATSON-2013-06814

PATIENT
  Sex: Male

DRUGS (2)
  1. MINOCYCLINE (UNKNOWN) [Suspect]
     Indication: ROSACEA
     Dosage: 100 MG, DAILY
     Route: 048
     Dates: start: 20081026
  2. ANTIGRIPPINE                       /00411801/ [Concomitant]
     Indication: PRODUCT USED FOR UNKNOWN INDICATION
     Dosage: 1 DF, DAILY
     Route: 065
     Dates: start: 20081030

REACTIONS (1)
  - Interstitial lung disease [Fatal]
